FAERS Safety Report 5571517-1 (Version None)
Quarter: 2007Q4

REPORT INFORMATION
  Report Type: 
  Country: None (occurrence: None)
  Receive Date: 20071221
  Receipt Date: 20071217
  Transmission Date: 20080405
  Serious: Yes (Other)
  Sender: FDA-Public Use
  Company Number: US-JNJFOC-20071204842

PATIENT
  Age: 29 Year
  Sex: Female
  Weight: 85.73 kg

DRUGS (7)
  1. ORTHO EVRA [Suspect]
     Indication: CONTRACEPTION
     Route: 062
  2. PERCOCET [Concomitant]
  3. LYRICA [Concomitant]
  4. ADVAIR DISKUS 100/50 [Concomitant]
  5. DEXMETHSONE [Concomitant]
  6. FLEXERIL [Concomitant]
  7. ZANTAC [Concomitant]

REACTIONS (1)
  - WEIGHT INCREASED [None]
